FAERS Safety Report 6666288-1 (Version None)
Quarter: 2010Q2

REPORT INFORMATION
  Report Type: 
  Country: None (occurrence: None)
  Receive Date: 20100402
  Receipt Date: 20100330
  Transmission Date: 20101027
  Serious: Yes (Hospitalization)
  Sender: FDA-Public Use
  Company Number: US-GILEAD-2010-0028220

PATIENT
  Sex: Female
  Weight: 49.032 kg

DRUGS (14)
  1. LETAIRIS [Suspect]
     Indication: PULMONARY ARTERIAL HYPERTENSION
     Route: 048
     Dates: start: 20070826
  2. REVATIO [Concomitant]
  3. DILTIAZEM HCL [Concomitant]
  4. LASIX [Concomitant]
  5. ZETIA [Concomitant]
  6. CYMBALTA [Concomitant]
  7. XANAX [Concomitant]
  8. CELEXA [Concomitant]
  9. LEVOXYL [Concomitant]
  10. ASPIRIN [Concomitant]
  11. LAMICTAL CD [Concomitant]
  12. MULTI-VITAMIN [Concomitant]
  13. POTASSIUM CHLORIDE [Concomitant]
  14. VITAMIN B-12 [Concomitant]

REACTIONS (1)
  - PNEUMONIA [None]
